FAERS Safety Report 5167433-X (Version None)
Quarter: 2006Q4

REPORT INFORMATION
  Report Type: 
  Country: None (occurrence: None)
  Receive Date: 20061130
  Receipt Date: 20061120
  Transmission Date: 20070319
  Serious: Yes (Hospitalization)
  Sender: FDA-Public Use
  Company Number: 2006-03019

PATIENT
  Age: 55 Year
  Sex: Male

DRUGS (1)
  1. VELCADE [Suspect]
     Indication: NON-SMALL CELL LUNG CANCER
     Dosage: 3.33 MG, INTRAVENOUS
     Route: 042
     Dates: start: 20060905, end: 20060929

REACTIONS (2)
  - CATHETER RELATED INFECTION [None]
  - DIABETES MELLITUS [None]
